FAERS Safety Report 24364943 (Version 1)
Quarter: 2024Q3

REPORT INFORMATION
  Report Type: Report from Study
  Country: US (occurrence: US)
  Receive Date: 20240926
  Receipt Date: 20240926
  Transmission Date: 20241016
  Serious: No
  Sender: ACADIA PHARMACEUTICALS
  Company Number: US-ACADIA PHARMACEUTICALS INC.-ACA-2024-PIM-005275

PATIENT
  Age: 71 Year
  Sex: Female

DRUGS (22)
  1. NUPLAZID [Suspect]
     Active Substance: PIMAVANSERIN TARTRATE
     Indication: Parkinson^s disease
     Dosage: 34 MILLIGRAM, QD
     Route: 048
     Dates: start: 20240808
  2. ALBUTEROL SULFATE [Concomitant]
     Active Substance: ALBUTEROL SULFATE
  3. ALBUTEROL [Concomitant]
     Active Substance: ALBUTEROL
  4. AMIODARONE [Concomitant]
     Active Substance: AMIODARONE
  5. CARBIDOPA\LEVODOPA [Concomitant]
     Active Substance: CARBIDOPA\LEVODOPA
  6. CARISOPRODOL [Concomitant]
     Active Substance: CARISOPRODOL
  7. CETIRIZINE [Concomitant]
     Active Substance: CETIRIZINE HYDROCHLORIDE
  8. DICYCLOMINE [Concomitant]
     Active Substance: DICYCLOMINE HYDROCHLORIDE
  9. DULOXETINE [Concomitant]
     Active Substance: DULOXETINE
  10. ESZOPICLONE [Concomitant]
     Active Substance: ESZOPICLONE
  11. FLUTICASONE [Concomitant]
     Active Substance: FLUTICASONE
  12. GABAPENTIN [Concomitant]
     Active Substance: GABAPENTIN
  13. METOPROLOL [Concomitant]
     Active Substance: METOPROLOL
  14. OLANZAPINE [Concomitant]
     Active Substance: OLANZAPINE
  15. OMEPRAZOLE [Concomitant]
     Active Substance: OMEPRAZOLE
  16. POTASSIUM CHLORIDE [Concomitant]
     Active Substance: POTASSIUM CHLORIDE
  17. PRAVASTATIN [Concomitant]
     Active Substance: PRAVASTATIN
  18. SPIRONOLACTONE [Concomitant]
     Active Substance: SPIRONOLACTONE
  19. TORSEMIDE [Concomitant]
     Active Substance: TORSEMIDE
  20. TRAMADOL [Concomitant]
     Active Substance: TRAMADOL\TRAMADOL HYDROCHLORIDE
  21. XARELTO [Concomitant]
     Active Substance: RIVAROXABAN
  22. CEPHALEXIN [Concomitant]
     Active Substance: CEPHALEXIN

REACTIONS (1)
  - Urinary tract infection [Recovered/Resolved]

NARRATIVE: CASE EVENT DATE: 20240828
